FAERS Safety Report 6161085-8 (Version None)
Quarter: 2009Q2

REPORT INFORMATION
  Report Type: 
  Country: None (occurrence: None)
  Receive Date: 20090421
  Receipt Date: 20090413
  Transmission Date: 20091009
  Serious: Yes (Other)
  Sender: FDA-Public Use
  Company Number: CA-RANBAXY-2009US-23400

PATIENT

DRUGS (7)
  1. VERAPAMIL [Suspect]
     Indication: ARTERIOSPASM CORONARY
     Dosage: 80 MG, 4 IN 1 D
     Route: 048
  2. VERAPAMIL [Suspect]
     Dosage: 160 MG, TID
     Route: 048
  3. PROPRANOLOL HYDROCHLORIDE [Concomitant]
     Indication: ANGINA PECTORIS
  4. ISOSORBIDE DINITRATE [Concomitant]
     Indication: DRUG USE FOR UNKNOWN INDICATION
  5. ERGOMETRINE MALEATE [Concomitant]
     Indication: DRUG USE FOR UNKNOWN INDICATION
  6. NITROGLYCERIN [Concomitant]
     Indication: DRUG USE FOR UNKNOWN INDICATION
  7. NIFEDIPINE [Concomitant]
     Indication: DRUG USE FOR UNKNOWN INDICATION
     Dosage: 60 MG, QD
     Route: 048

REACTIONS (1)
  - SENSORY DISTURBANCE [None]
